FAERS Safety Report 25728019 (Version 1)
Quarter: 2025Q3

REPORT INFORMATION
  Report Type: Spontaneous
  Country: US (occurrence: None)
  Receive Date: 20250826
  Receipt Date: 20250826
  Transmission Date: 20251021
  Serious: Yes (Hospitalization)
  Sender: FDA-CTU
  Company Number: None

PATIENT
  Sex: Female

DRUGS (3)
  1. FORTEO [Suspect]
     Active Substance: TERIPARATIDE
     Indication: Senile osteoporosis
     Route: 058
     Dates: start: 20241213
  2. ESTRADIOL CRE [Concomitant]
  3. MODAFINIL [Concomitant]
     Active Substance: MODAFINIL

REACTIONS (5)
  - Fatigue [None]
  - Colitis [None]
  - Narcolepsy [None]
  - Sleep apnoea syndrome [None]
  - Loss of personal independence in daily activities [None]
